FAERS Safety Report 13211923 (Version 1)
Quarter: 2017Q1

REPORT INFORMATION
  Report Type: Spontaneous
  Country: CN (occurrence: CN)
  Receive Date: 20170210
  Receipt Date: 20170210
  Transmission Date: 20170428
  Serious: Yes (Other)
  Sender: FDA-Public Use
  Company Number: CN-BAYER-2017-026379

PATIENT
  Age: 74 Year
  Sex: Female
  Weight: 60 kg

DRUGS (3)
  1. ISOPHANE INSULIN [Suspect]
     Active Substance: INSULIN NOS
     Indication: DIABETES MELLITUS
     Dosage: 18 IU, QD
     Route: 055
     Dates: start: 20161213, end: 20161215
  2. GLUCOBAY [Suspect]
     Active Substance: ACARBOSE
     Indication: DIABETES MELLITUS
     Dosage: 0.05 G, TID
     Route: 048
     Dates: start: 20161215, end: 20161215
  3. GLIQUIDONE [Suspect]
     Active Substance: GLIQUIDONE
     Indication: DIABETES MELLITUS
     Dosage: 30 MG, BID
     Route: 048
     Dates: start: 20161213, end: 20161215

REACTIONS (1)
  - Hypoglycaemia [Recovering/Resolving]

NARRATIVE: CASE EVENT DATE: 20161215
